FAERS Safety Report 9917491 (Version 1)
Quarter: 2014Q1

REPORT INFORMATION
  Report Type: Spontaneous
  Country: DE (occurrence: DE)
  Receive Date: 20140221
  Receipt Date: 20140221
  Transmission Date: 20141002
  Serious: Yes (Hospitalization)
  Sender: FDA-Public Use
  Company Number: DE-TEVA-463312GER

PATIENT
  Age: 66 Year
  Sex: Female

DRUGS (5)
  1. RIBAVIRIN [Suspect]
     Indication: HEPATITIS C
     Route: 065
  2. TELAPREVIR [Suspect]
     Indication: HEPATITIS C
     Route: 065
  3. PEGINTERFERON [Suspect]
     Indication: HEPATITIS C
     Route: 065
  4. TACROLIMUS [Concomitant]
     Indication: IMMUNOSUPPRESSANT DRUG THERAPY
     Route: 065
  5. MYCOPHENOLATE MOFETIL [Concomitant]
     Indication: IMMUNOSUPPRESSANT DRUG THERAPY
     Route: 065

REACTIONS (4)
  - H1N1 influenza [Unknown]
  - Klebsiella infection [Unknown]
  - Oral herpes [Unknown]
  - Cytomegalovirus enteritis [Unknown]
